FAERS Safety Report 6403129-1 (Version None)
Quarter: 2009Q4

REPORT INFORMATION
  Report Type: 
  Country: None (occurrence: None)
  Receive Date: 20091016
  Receipt Date: 20091009
  Transmission Date: 20100525
  Serious: Yes (Death)
  Sender: FDA-Public Use
  Company Number: JP-JNJFOC-20091004816

PATIENT
  Sex: Male
  Weight: 50 kg

DRUGS (28)
  1. DUROTEP [Suspect]
     Dosage: COVERED 1/2 AREA OF PATCH
     Route: 062
  2. DUROTEP [Suspect]
     Dosage: COVERED 1/2 AREA OF PATCH
     Route: 062
  3. DUROTEP [Suspect]
     Dosage: COVERED 1/4 AREA OF PATCH
     Route: 062
  4. DUROTEP [Suspect]
     Indication: CANCER PAIN
     Dosage: COVERED 1/2 AREA OF PATCH
     Route: 062
  5. OXYCONTIN [Concomitant]
     Indication: CANCER PAIN
     Route: 048
  6. ROPION [Concomitant]
     Indication: CANCER PAIN
     Route: 042
  7. DIOVAN [Concomitant]
     Indication: HYPERTENSION
     Route: 048
  8. MOBIC [Concomitant]
     Indication: ANALGESIC THERAPY
     Route: 048
  9. ACINON [Concomitant]
     Indication: PROPHYLAXIS
     Route: 048
  10. ARICEPT [Concomitant]
     Indication: DEMENTIA ALZHEIMER'S TYPE
     Route: 048
  11. ANTIBIOPHILUS [Concomitant]
     Indication: PROPHYLAXIS
     Route: 048
  12. ADONA [Concomitant]
  13. STANZOME [Concomitant]
     Indication: PROPHYLAXIS
     Route: 048
  14. SEROQUEL [Concomitant]
     Indication: DEMENTIA ALZHEIMER'S TYPE
     Route: 048
  15. RISPERDAL [Concomitant]
     Route: 048
  16. RISPERDAL [Concomitant]
     Indication: DEMENTIA ALZHEIMER'S TYPE
     Route: 048
  17. ATARAX [Concomitant]
     Indication: DEMENTIA ALZHEIMER'S TYPE
     Route: 048
  18. VOLTAREN [Concomitant]
     Indication: ANALGESIC THERAPY
     Route: 054
  19. GLYCERINE [Concomitant]
     Indication: CONSTIPATION
     Route: 065
  20. LECICARBON [Concomitant]
     Indication: CONSTIPATION
     Route: 048
  21. ZINC OXIDE [Concomitant]
     Route: 062
  22. ZINC OXIDE [Concomitant]
     Indication: HAEMORRHOIDS
     Route: 062
  23. POSTERISAN [Concomitant]
     Indication: HAEMORRHOIDS
     Route: 062
  24. VITAMEDIN [Concomitant]
     Indication: PROPHYLAXIS
     Route: 042
  25. VITAJECT [Concomitant]
     Indication: PROPHYLAXIS
     Route: 042
  26. ZANTAC [Concomitant]
     Indication: PROPHYLAXIS
     Route: 042
  27. AMIKACIN SULFATE [Concomitant]
     Indication: PYREXIA
     Route: 042
  28. ROPION [Concomitant]
     Indication: ANALGESIC THERAPY
     Route: 042

REACTIONS (6)
  - ARRHYTHMIA [None]
  - DYSPHAGIA [None]
  - PAIN [None]
  - PYREXIA [None]
  - URETERIC CANCER [None]
  - WRONG TECHNIQUE IN DRUG USAGE PROCESS [None]
